FAERS Safety Report 5324341-9 (Version None)
Quarter: 2007Q2

REPORT INFORMATION
  Report Type: 
  Country: None (occurrence: None)
  Receive Date: 20070509
  Receipt Date: 20070503
  Transmission Date: 20071010
  Serious: Yes (Death)
  Sender: FDA-Public Use
  Company Number: 2007-158140-NL

PATIENT
  Age: 68 Year
  Sex: Female

DRUGS (3)
  1. MIRTAZAPINE [Suspect]
     Indication: DEPRESSION
     Dosage: 30 MG; ORAL
     Route: 048
     Dates: start: 20051207
  2. DULOXETINE [Suspect]
     Indication: DEPRESSION
     Dosage: 60 MG; ORAL
     Route: 048
     Dates: start: 20070118
  3. TEMAZEPAM [Concomitant]

REACTIONS (1)
  - SUBARACHNOID HAEMORRHAGE [None]
